FAERS Safety Report 4685765-6 (Version None)
Quarter: 2005Q2

REPORT INFORMATION
  Report Type: 
  Country: None (occurrence: None)
  Receive Date: 20050608
  Receipt Date: 20050524
  Transmission Date: 20051028
  Serious: Yes (Death, Other)
  Sender: FDA-Public Use
  Company Number: HQWYE411123JUL04

PATIENT
  Age: 51 Year
  Sex: Female
  Weight: 64.92 kg

DRUGS (6)
  1. PREMPRO [Suspect]
     Indication: HOT FLUSH
  2. PREMPRO [Suspect]
     Indication: NIGHT SWEATS
  3. ESTROGENS NOS (ESTROGEN NOS,) [Suspect]
  4. MEDROXYPROGESTERONE ACETATE [Suspect]
     Dosage: ORAL
     Dates: start: 19970101, end: 20010101
  5. PREMARIN [Suspect]
     Dosage: ORAL
     Route: 048
     Dates: start: 19970101, end: 20010101
  6. PROVERA [Suspect]

REACTIONS (2)
  - BREAST CANCER METASTATIC [None]
  - METASTASES TO LIVER [None]
